FAERS Safety Report 9638993 (Version 1)
Quarter: 2013Q4

REPORT INFORMATION
  Report Type: Spontaneous
  Country: GB (occurrence: GB)
  Receive Date: 20131022
  Receipt Date: 20131022
  Transmission Date: 20140711
  Serious: Yes (Death)
  Sender: FDA-Public Use
  Company Number: GB-UCBSA-100246

PATIENT
  Age: 78 Year
  Sex: Male

DRUGS (24)
  1. CO-CODAMOL [Suspect]
     Dosage: DOSE: UKNOWN, 2 TABLET
     Dates: start: 20130607, end: 20130609
  2. CO-CODAMOL [Suspect]
     Dosage: 2 TABLETS AT 16.35 + 22.00
     Dates: start: 20130618, end: 20130619
  3. ZOPICLONE [Suspect]
     Indication: SEDATION
     Dosage: DOSE: 7.5 MG
     Dates: start: 20130618, end: 20130618
  4. ADCAL-D3 [Concomitant]
     Dosage: DOSE: 1 DF
  5. ALENDRONIC ACID [Concomitant]
     Dosage: DOSE: 70 MG
  6. AMOXICILLIN [Concomitant]
     Dosage: DOSE: 1 G
     Route: 042
     Dates: start: 20130609, end: 20130611
  7. AMOXICILLIN [Concomitant]
     Dates: start: 20130611, end: 20130616
  8. ASPIRIN [Concomitant]
     Dosage: 75 MG
  9. CLEXANE [Concomitant]
     Dosage: DOSE: 40 MG
     Route: 058
     Dates: start: 20130609, end: 20130616
  10. DIGOXIN [Concomitant]
     Dates: start: 20130607, end: 20130618
  11. DIGOXIN [Concomitant]
     Dosage: UNKNOWN
  12. DIPYRIDAMOLE [Concomitant]
  13. FINASTERIDE [Concomitant]
     Dosage: DOSE: 5 MG
  14. FUROSEMIDE [Concomitant]
  15. METRONIDAZOLE [Concomitant]
     Dosage: DOSE: 500 MG
     Route: 042
     Dates: start: 20130609, end: 20130611
  16. METRONIDAZOLE [Concomitant]
     Dates: start: 20130611, end: 20130616
  17. MOVICOL [Concomitant]
     Dosage: 1 DF
  18. PARACETAMOL [Concomitant]
  19. PARACETAMOL [Concomitant]
  20. PREDNISOLONE [Concomitant]
     Dates: start: 20130611, end: 20130616
  21. SALBUTAMOL [Concomitant]
  22. SERETIDE [Concomitant]
  23. SIMVASTATIN [Concomitant]
  24. SPIRIVA [Concomitant]

REACTIONS (1)
  - Respiratory depression [Fatal]
